FAERS Safety Report 7201255-0 (Version None)
Quarter: 2010Q4

REPORT INFORMATION
  Report Type: 
  Country: None (occurrence: None)
  Receive Date: 20101229
  Receipt Date: 20101223
  Transmission Date: 20110411
  Serious: Yes (Death)
  Sender: FDA-Public Use
  Company Number: GXKR2010DE14234

PATIENT
  Age: 78 Year
  Sex: Male

DRUGS (12)
  1. SERTRALINE HYDROCHLORIDE [Suspect]
     Dosage: 75 MG, QD
     Route: 048
     Dates: start: 20100519, end: 20100526
  2. SERTRALINE HYDROCHLORIDE [Suspect]
     Dosage: 100 MG, QD
     Route: 048
     Dates: start: 20100527, end: 20100530
  3. SERTRALINE HYDROCHLORIDE [Suspect]
     Dosage: 50 MG, QD
     Route: 048
     Dates: end: 20100518
  4. RISPERDAL [Suspect]
     Dosage: 0.5 MG, QD
     Route: 048
     Dates: start: 20100512, end: 20100515
  5. RISPERDAL [Suspect]
     Dosage: 1 MG, QD
     Route: 048
     Dates: start: 20100516, end: 20100517
  6. RISPERDAL [Suspect]
     Dosage: 2 MG, QD
     Route: 048
     Dates: start: 20100518, end: 20100530
  7. ACETYLSALICYLIC ACID SRT [Concomitant]
     Dosage: 100 MG, QD
     Route: 048
     Dates: end: 20100530
  8. SIMVASTATIN [Concomitant]
     Dosage: 20 MG, QD
     Route: 048
     Dates: end: 20100530
  9. BISOPROLOL [Concomitant]
     Dosage: 5 MG, UNK
     Route: 048
     Dates: end: 20100530
  10. TOREM [Concomitant]
     Dosage: 5 MG, UNK
     Route: 048
     Dates: end: 20100530
  11. INSULIN [Concomitant]
     Dosage: UNK
     Route: 058
     Dates: end: 20100530
  12. JONOSTERIL [Concomitant]

REACTIONS (1)
  - MYOCARDIAL INFARCTION [None]
